FAERS Safety Report 6823770-1 (Version None)
Quarter: 2010Q3

REPORT INFORMATION
  Report Type: 
  Country: None (occurrence: None)
  Receive Date: 20100708
  Receipt Date: 20060930
  Transmission Date: 20110219
  Serious: Yes (Hospitalization, Other)
  Sender: FDA-Public Use
  Company Number: US-PFIZER INC-2006094787

PATIENT
  Age: 46 Year
  Sex: Male
  Weight: 100.2 kg

DRUGS (3)
  1. CHANTIX [Suspect]
     Indication: SMOKING CESSATION THERAPY
     Route: 065
  2. BENICAR HCT [Concomitant]
     Route: 048
  3. LEXAPRO [Concomitant]
     Indication: SMOKING CESSATION THERAPY
     Route: 048

REACTIONS (11)
  - ATRIAL FIBRILLATION [None]
  - BLOOD TRIGLYCERIDES INCREASED [None]
  - DECREASED APPETITE [None]
  - DIZZINESS [None]
  - DYSLIPIDAEMIA [None]
  - DYSPNOEA [None]
  - FATIGUE [None]
  - HEART RATE ABNORMAL [None]
  - HIGH DENSITY LIPOPROTEIN DECREASED [None]
  - MALAISE [None]
  - PALPITATIONS [None]
